FAERS Safety Report 20929205 (Version 2)
Quarter: 2022Q3

REPORT INFORMATION
  Report Type: Spontaneous
  Country: CZ (occurrence: CZ)
  Receive Date: 20220608
  Receipt Date: 20220715
  Transmission Date: 20221027
  Serious: Yes (Hospitalization, Other)
  Sender: FDA-Public Use
  Company Number: CZ-TEVA-2022-CZ-2039191

PATIENT
  Age: 45 Year
  Sex: Female
  Weight: 76 kg

DRUGS (8)
  1. METOPROLOL [Suspect]
     Active Substance: METOPROLOL
     Indication: Product used for unknown indication
     Dosage: UNK
     Route: 065
  2. FREMANEZUMAB [Suspect]
     Active Substance: FREMANEZUMAB
     Indication: Migraine
     Dosage: 225 MILLIGRAM, 3 TIMES A DAY
     Route: 058
     Dates: start: 20220217, end: 2022
  3. TOPIRAMATE [Suspect]
     Active Substance: TOPIRAMATE
     Indication: Migraine
     Dosage: UNK
     Route: 065
  4. SUMATRIPTAN [Concomitant]
     Active Substance: SUMATRIPTAN
     Indication: Migraine
     Dosage: 50 MILLIGRAM
     Route: 048
     Dates: start: 2005
  5. ACETAMINOPHEN\CAFFEINE\GUAIFENESIN [Concomitant]
     Active Substance: ACETAMINOPHEN\CAFFEINE\GUAIFENESIN
     Indication: Migraine
     Dosage: UNK (PARACETAMOL 325 MG, GUAIFENESIN 130 MG AND CAFFEINE 70 MG)
     Route: 065
     Dates: start: 2005
  6. ELETRIPTAN [Concomitant]
     Active Substance: ELETRIPTAN
     Indication: Migraine
     Dosage: 80 MILLIGRAM
     Route: 048
     Dates: start: 2005
  7. NIMESULIDE [Concomitant]
     Active Substance: NIMESULIDE
     Indication: Migraine
     Dosage: 100 MILLIGRAM
     Route: 048
     Dates: start: 2005
  8. DIENOGEST\ETHINYL ESTRADIOL [Concomitant]
     Active Substance: DIENOGEST\ETHINYL ESTRADIOL
     Indication: Product used for unknown indication
     Dosage: UNK ((ETHINYL ESTRADIOL 0.030 MG AND DIENOGEST 2.00 MG) 1-0-0)
     Route: 048
     Dates: start: 2016

REACTIONS (2)
  - Cerebral infarction [Recovering/Resolving]
  - Drug ineffective [Unknown]

NARRATIVE: CASE EVENT DATE: 20220316
